FAERS Safety Report 18372880 (Version 23)
Quarter: 2023Q4

REPORT INFORMATION
  Report Type: Spontaneous
  Country: IL (occurrence: IL)
  Receive Date: 20201012
  Receipt Date: 20231020
  Transmission Date: 20240109
  Serious: Yes (Other)
  Sender: FDA-Public Use
  Company Number: IL-PFIZER INC-2018092399

PATIENT
  Age: 44 Year
  Sex: Female

DRUGS (23)
  1. ELELYSO [Suspect]
     Active Substance: TALIGLUCERASE ALFA
     Indication: Gaucher^s disease
     Dosage: 1000 IU, TWICE A MONTH
     Route: 042
  2. ELELYSO [Suspect]
     Active Substance: TALIGLUCERASE ALFA
     Dosage: 1000 IU, TWICE A MONTH
     Dates: start: 20160301
  3. ELELYSO [Suspect]
     Active Substance: TALIGLUCERASE ALFA
     Dosage: TWICE A MONTH
     Route: 042
  4. ELELYSO [Suspect]
     Active Substance: TALIGLUCERASE ALFA
     Dosage: TWICE A MONTH
     Route: 042
  5. ELELYSO [Suspect]
     Active Substance: TALIGLUCERASE ALFA
     Dosage: TWICE A MONTH
     Route: 042
  6. ELELYSO [Suspect]
     Active Substance: TALIGLUCERASE ALFA
     Dosage: TWICE A MONTH
     Route: 042
  7. ELELYSO [Suspect]
     Active Substance: TALIGLUCERASE ALFA
     Dosage: TWICE A MONTH
     Route: 042
  8. ELELYSO [Suspect]
     Active Substance: TALIGLUCERASE ALFA
     Dosage: TWICE A MONTH
     Route: 042
  9. ELELYSO [Suspect]
     Active Substance: TALIGLUCERASE ALFA
     Dosage: TWICE A MONTH
     Route: 042
  10. ELELYSO [Suspect]
     Active Substance: TALIGLUCERASE ALFA
     Dosage: TWICE A MONTH
     Route: 042
  11. ELELYSO [Suspect]
     Active Substance: TALIGLUCERASE ALFA
     Dosage: TWICE A MONTH
     Route: 042
  12. ELELYSO [Suspect]
     Active Substance: TALIGLUCERASE ALFA
     Dosage: TWICE A MONTH, 5 VIALS TWICE A MONTH
     Route: 042
  13. ELELYSO [Suspect]
     Active Substance: TALIGLUCERASE ALFA
     Dosage: TWICE A MONTH, 5 VIALS
     Route: 042
  14. ELELYSO [Suspect]
     Active Substance: TALIGLUCERASE ALFA
     Dosage: TWICE A MONTH, 5 VIALS
     Route: 042
  15. ELELYSO [Suspect]
     Active Substance: TALIGLUCERASE ALFA
     Dosage: TWICE A MONTH, 5 VIALS
     Route: 042
  16. ELELYSO [Suspect]
     Active Substance: TALIGLUCERASE ALFA
     Dosage: TWICE A MONTH, 5 VIALS
     Route: 042
  17. ELELYSO [Suspect]
     Active Substance: TALIGLUCERASE ALFA
     Dosage: 10 VIALS A MONTH
  18. ELELYSO [Suspect]
     Active Substance: TALIGLUCERASE ALFA
     Dosage: 200 IU, 10 VIALS A MONTH
     Route: 042
  19. ELELYSO [Suspect]
     Active Substance: TALIGLUCERASE ALFA
     Dosage: 200 IU, 10 VIALS A MONTH, TWICE A MONTH
     Route: 042
     Dates: start: 20230418, end: 20230418
  20. ELELYSO [Suspect]
     Active Substance: TALIGLUCERASE ALFA
     Dosage: 5 VIALS PER TREATMEANT, TWICE MONTHLY
     Route: 042
  21. ELELYSO [Suspect]
     Active Substance: TALIGLUCERASE ALFA
     Dosage: 5 VIALS PER TREATMEANT, TWICE MONTHLY
     Route: 042
     Dates: start: 20230904, end: 20230904
  22. ELELYSO [Suspect]
     Active Substance: TALIGLUCERASE ALFA
     Dosage: 10 VIALS TWICE A MONTH
     Route: 042
  23. ELELYSO [Suspect]
     Active Substance: TALIGLUCERASE ALFA
     Dosage: 5 VIALS PER TREATMENT, TWICE MONTHLY. 10 VIALS TOTAL FOR A MONTH
     Route: 042
     Dates: start: 20231012

REACTIONS (13)
  - COVID-19 [Unknown]
  - Hepatic function abnormal [Recovering/Resolving]
  - Vitamin B12 decreased [Unknown]
  - Sneezing [Recovered/Resolved]
  - Fatigue [Unknown]
  - Back pain [Recovering/Resolving]
  - Insomnia [Recovering/Resolving]
  - Asthenia [Recovered/Resolved]
  - Diarrhoea [Recovered/Resolved]
  - Nausea [Recovered/Resolved]
  - Product dose omission in error [Unknown]
  - Abdominal pain [Recovered/Resolved]
  - Inappropriate schedule of product administration [Unknown]

NARRATIVE: CASE EVENT DATE: 20180101
